FAERS Safety Report 11862324 (Version 1)
Quarter: 2015Q4

REPORT INFORMATION
  Report Type: Spontaneous
  Country: US (occurrence: None)
  Receive Date: 20151222
  Receipt Date: 20151222
  Transmission Date: 20160305
  Serious: No
  Sender: FDA-Public Use
  Company Number: None

PATIENT
  Age: 50 Year
  Sex: Male
  Weight: 93.9 kg

DRUGS (1)
  1. LOSARTAN/HCT [Suspect]
     Active Substance: HYDROCHLOROTHIAZIDE\LOSARTAN POTASSIUM
     Indication: HYPERTENSION
     Dosage: 325/25
     Route: 048
     Dates: start: 201510

REACTIONS (3)
  - Chest discomfort [None]
  - Dizziness [None]
  - Photopsia [None]

NARRATIVE: CASE EVENT DATE: 201510
